FAERS Safety Report 8603571 (Version 4)
Quarter: 2013Q4

REPORT INFORMATION
  Report Type: Spontaneous
  Country: US (occurrence: US)
  Receive Date: 20120607
  Receipt Date: 20131004
  Transmission Date: 20140711
  Serious: No
  Sender: FDA-Public Use
  Company Number: US-PURDUE-USA-2012-0088131

PATIENT
  Sex: Male

DRUGS (1)
  1. BUTRANS [Suspect]
     Indication: PRODUCT USED FOR UNKNOWN INDICATION
     Route: 062

REACTIONS (1)
  - Heart rate increased [Recovered/Resolved]
